FAERS Safety Report 6305597-2 (Version None)
Quarter: 2009Q3

REPORT INFORMATION
  Report Type: 
  Country: None (occurrence: None)
  Receive Date: 20090811
  Receipt Date: 20090804
  Transmission Date: 20100115
  Serious: Yes (Other)
  Sender: FDA-Public Use
  Company Number: US-GILEAD-2009-0022818

PATIENT
  Sex: Female

DRUGS (12)
  1. LETAIRIS [Suspect]
     Indication: PULMONARY ARTERIAL HYPERTENSION
     Route: 048
     Dates: start: 20081205
  2. ASPIRIN [Concomitant]
  3. PLAVIX [Concomitant]
  4. FUROSEMIDE [Concomitant]
  5. METOPROLOL [Concomitant]
  6. HYDRALAZINE HCL [Concomitant]
  7. LEVOTHYROXINE [Concomitant]
  8. ASTELIN [Concomitant]
  9. SPIRIVA [Concomitant]
  10. NASACORT [Concomitant]
  11. KLOR-CON [Concomitant]
  12. CENTRUM SILVER [Concomitant]

REACTIONS (1)
  - ANAEMIA [None]
